FAERS Safety Report 5441621-7 (Version None)
Quarter: 2007Q3

REPORT INFORMATION
  Report Type: 
  Country: None (occurrence: None)
  Receive Date: 20070829
  Receipt Date: 20070814
  Transmission Date: 20080115
  Serious: Yes (Death)
  Sender: FDA-Public Use
  Company Number: 2007EU001792

PATIENT
  Age: 51 Year
  Sex: Male

DRUGS (2)
  1. TACROLIMUS [Suspect]
     Indication: HEART TRANSPLANT
     Dosage: D
     Dates: start: 20060301
  2. AZATHIOPRINE [Suspect]
     Indication: HEART TRANSPLANT
     Dosage: D
     Dates: start: 19980801

REACTIONS (6)
  - ABDOMINAL DISCOMFORT [None]
  - AORTIC DISSECTION [None]
  - CARDIAC MYXOMA [None]
  - CORONARY ARTERY STENOSIS [None]
  - HEPATORENAL FAILURE [None]
  - POST PROCEDURAL COMPLICATION [None]
